FAERS Safety Report 24059169 (Version 2)
Quarter: 2025Q2

REPORT INFORMATION
  Report Type: Spontaneous
  Country: US (occurrence: US)
  Receive Date: 20240708
  Receipt Date: 20250410
  Transmission Date: 20250716
  Serious: No
  Sender: KINIKSA PHARMACEUTICALS
  Company Number: US-Kiniksa Pharmaceuticals Ltd.-2024KPU001021

PATIENT
  Sex: Female

DRUGS (3)
  1. ARCALYST [Suspect]
     Active Substance: RILONACEPT
     Indication: Pericarditis
     Route: 058
     Dates: start: 20240615
  2. IBUPROFEN [Concomitant]
     Active Substance: IBUPROFEN
     Indication: Product used for unknown indication
  3. COLCHICINE [Concomitant]
     Active Substance: COLCHICINE
     Indication: Product used for unknown indication

REACTIONS (2)
  - Hypertension [Recovered/Resolved]
  - Tachycardia [Recovered/Resolved]
